FAERS Safety Report 5387434-6 (Version None)
Quarter: 2007Q3

REPORT INFORMATION
  Report Type: 
  Country: None (occurrence: None)
  Receive Date: 20070711
  Receipt Date: 20070711
  Transmission Date: 20080115
  Serious: Yes (Other)
  Sender: FDA-Public Use
  Company Number: None

PATIENT
  Age: 30 Year
  Sex: Female
  Weight: 86.1834 kg

DRUGS (1)
  1. ALLI [Suspect]
     Indication: WEIGHT CONTROL
     Dosage: 1 PILL 3X A DAY PO
     Route: 048
     Dates: start: 20070701, end: 20070710

REACTIONS (3)
  - MENSTRUATION IRREGULAR [None]
  - METRORRHAGIA [None]
  - OLIGOMENORRHOEA [None]
